FAERS Safety Report 5282421-0 (Version None)
Quarter: 2007Q1

REPORT INFORMATION
  Report Type: 
  Country: None (occurrence: None)
  Receive Date: 20070326
  Receipt Date: 20070309
  Transmission Date: 20070707
  Serious: Yes (Death, Life-Threatening, Hospitalization)
  Sender: FDA-Public Use
  Company Number: 2006EU002116

PATIENT
  Age: 63 Year
  Sex: Male

DRUGS (13)
  1. FK506 (TACROLIMUS) CAPSULE [Suspect]
     Indication: LIVER TRANSPLANT
     Dosage: SEE IMAGE
     Dates: start: 20050502, end: 20050502
  2. FK506 (TACROLIMUS) CAPSULE [Suspect]
     Indication: LIVER TRANSPLANT
     Dosage: SEE IMAGE
     Dates: start: 20050503, end: 20050922
  3. METHYLPREDNISOLONE [Suspect]
     Indication: LIVER TRANSPLANT
     Dosage: 50 MG, UID/QD, UNKNOWN
     Dates: start: 20050502, end: 20050517
  4. PREDNISONE TAB [Suspect]
     Indication: LIVER TRANSPLANT
     Dosage: 5 MG, UID/QD, UNKNOWN
     Dates: start: 20050508, end: 20050806
  5. PIPERILLINE (PIPERACILLIN SODIUM) [Concomitant]
  6. HEPARIN [Concomitant]
  7. SUFENTA [Concomitant]
  8. MIDAZOLAM HCL [Concomitant]
  9. TRASYLOL [Concomitant]
  10. NOREPINEPHRINE BITARTRATE [Concomitant]
  11. OMEPRAZOLE [Concomitant]
  12. URSOLVAN-200 (URSODEOXYCHOLIC ACID) [Concomitant]
  13. DOBUTREX [Concomitant]

REACTIONS (14)
  - ABDOMINAL HAEMATOMA [None]
  - ACUTE PULMONARY OEDEMA [None]
  - BACTEROIDES INFECTION [None]
  - CANDIDIASIS [None]
  - DISEASE RECURRENCE [None]
  - ENTEROCOCCAL INFECTION [None]
  - HAEMODIALYSIS [None]
  - MALNUTRITION [None]
  - MULTI-ORGAN FAILURE [None]
  - MYOCARDIAL INFARCTION [None]
  - PSEUDOMONAS INFECTION [None]
  - SEPTIC SHOCK [None]
  - STENOTROPHOMONAS INFECTION [None]
  - TACHYARRHYTHMIA [None]
